FAERS Safety Report 9356463 (Version 2)
Quarter: 2013Q2

REPORT INFORMATION
  Report Type: Spontaneous
  Country: US (occurrence: US)
  Receive Date: 20130619
  Receipt Date: 20130628
  Transmission Date: 20140414
  Serious: Yes (Hospitalization, Other)
  Sender: FDA-Public Use
  Company Number: US-BAXTER-2013BAX022291

PATIENT
  Age: 76 Year
  Sex: Male

DRUGS (1)
  1. DIANEAL LOW CALCIUM [Suspect]
     Indication: PERITONEAL DIALYSIS
     Route: 033
     Dates: end: 20130525

REACTIONS (3)
  - Clostridium difficile infection [Recovered/Resolved]
  - Pleural effusion [Recovering/Resolving]
  - Gastric infection [Recovering/Resolving]
